FAERS Safety Report 5599839-9 (Version None)
Quarter: 2007Q4

REPORT INFORMATION
  Report Type: 
  Country: None (occurrence: None)
  Receive Date: 20071227
  Receipt Date: 20070323
  Transmission Date: 20080405
  Serious: Yes (Life-Threatening, Hospitalization, Other)
  Sender: FDA-Public Use
  Company Number: 2007010563

PATIENT
  Age: 22 Month
  Sex: Female
  Weight: 11.5 kg

DRUGS (7)
  1. PFIZERPEN [Suspect]
     Dosage: 3 MILLOIN UNITS (ONCE), INTRAVENOUS
     Route: 042
     Dates: start: 20070206, end: 20070206
  2. MIDAZOLAM HCL [Concomitant]
  3. MEPERIDINE (MEPERIDINE) [Concomitant]
  4. DEXAMETHASONE TAB [Concomitant]
  5. ZOFRAN [Concomitant]
  6. VERSED [Concomitant]
  7. DEMEROL [Concomitant]

REACTIONS (2)
  - CARDIAC ARREST [None]
  - OVERDOSE [None]
